FAERS Safety Report 4771373-5 (Version None)
Quarter: 2005Q3

REPORT INFORMATION
  Report Type: 
  Country: None (occurrence: None)
  Receive Date: 20050915
  Receipt Date: 20050913
  Transmission Date: 20060218
  Serious: Yes (Life-Threatening, Hospitalization)
  Sender: FDA-Public Use
  Company Number: DE-MERCK-0509DEU00071

PATIENT
  Age: 70 Year
  Sex: Male

DRUGS (5)
  1. VYTORIN [Suspect]
     Indication: HYPERCHOLESTEROLAEMIA
     Route: 048
     Dates: start: 20040101, end: 20050827
  2. PHENPROCOUMON [Concomitant]
     Route: 065
     Dates: start: 19940101
  3. ISOSORBIDE DINITRATE [Concomitant]
     Route: 065
  4. TORSEMIDE [Concomitant]
     Route: 065
  5. METOPROLOL SUCCINATE [Concomitant]
     Route: 065

REACTIONS (2)
  - INTERNATIONAL NORMALISED RATIO INCREASED [None]
  - PANCREATITIS [None]
